FAERS Safety Report 20177991 (Version 2)
Quarter: 2021Q4

REPORT INFORMATION
  Report Type: Spontaneous
  Country: US (occurrence: US)
  Receive Date: 20211213
  Receipt Date: 20211221
  Transmission Date: 20220304
  Serious: No
  Sender: FDA-Public Use
  Company Number: US-SA-SAC20211208000770

PATIENT
  Age: 58 Year
  Sex: Female
  Weight: 62.4 kg

DRUGS (3)
  1. DUPIXENT [Suspect]
     Active Substance: DUPILUMAB
     Indication: Illness
     Dosage: 300 MG, QOW
     Route: 058
     Dates: start: 20211108
  2. CLOBETASOL [Concomitant]
     Active Substance: CLOBETASOL
     Dosage: UNK
  3. CETAPHIL [BUTYL HYDROXYBENZOATE;CETYL ALCOHOL;PROPYLENE GLYCOL;SODIUM [Concomitant]

REACTIONS (1)
  - Chronic obstructive pulmonary disease [Unknown]

NARRATIVE: CASE EVENT DATE: 20210101
